FAERS Safety Report 12632569 (Version 2)
Quarter: 2016Q3

REPORT INFORMATION
  Report Type: Spontaneous
  Country: US (occurrence: US)
  Receive Date: 20160808
  Receipt Date: 20160808
  Transmission Date: 20161109
  Serious: No
  Sender: FDA-Public Use
  Company Number: US-BEH-2015056075

PATIENT
  Sex: Female
  Weight: 63 kg

DRUGS (12)
  1. CRESTOR [Concomitant]
     Active Substance: ROSUVASTATIN CALCIUM
  2. HIZENTRA [Suspect]
     Active Substance: HUMAN IMMUNOGLOBULIN G
     Indication: IMMUNODEFICIENCY COMMON VARIABLE
     Dosage: 4 GM 20 ML VIAL
     Route: 058
  3. ACETAMINOPHEN. [Concomitant]
     Active Substance: ACETAMINOPHEN
  4. LOVENOX [Concomitant]
     Active Substance: ENOXAPARIN SODIUM
  5. VITAMIN D [Concomitant]
     Active Substance: CHOLECALCIFEROL
  6. KLOR-CON [Concomitant]
     Active Substance: POTASSIUM CHLORIDE
  7. DIPHENHYDRAMINE. [Concomitant]
     Active Substance: DIPHENHYDRAMINE
  8. EPIPEN [Concomitant]
     Active Substance: EPINEPHRINE
  9. OXYCODONE [Concomitant]
     Active Substance: OXYCODONE
  10. CALCIUM [Concomitant]
     Active Substance: CALCIUM
  11. ZYRTEC [Concomitant]
     Active Substance: CETIRIZINE HYDROCHLORIDE
  12. PREDNISONE. [Concomitant]
     Active Substance: PREDNISONE

REACTIONS (3)
  - Limb discomfort [Unknown]
  - Gait disturbance [Unknown]
  - Pain in extremity [Unknown]
